FAERS Safety Report 4925546-9 (Version None)
Quarter: 2006Q1

REPORT INFORMATION
  Report Type: 
  Country: None (occurrence: None)
  Receive Date: 20060228
  Receipt Date: 20060208
  Transmission Date: 20060701
  Serious: Yes (Hospitalization)
  Sender: FDA-Public Use
  Company Number: PHHO2006JP02538

PATIENT
  Age: 63 Year
  Sex: Male

DRUGS (5)
  1. DIOVAN [Suspect]
     Indication: HYPERTENSION
     Dosage: 80 MG, QD
     Route: 048
     Dates: start: 20030728, end: 20050416
  2. AMLODIN [Concomitant]
     Indication: HYPERTENSION
  3. CARDENALIN [Concomitant]
     Indication: HYPERTENSION
  4. PAMILCON [Concomitant]
     Indication: DIABETES MELLITUS
  5. BASEN [Concomitant]
     Indication: DIABETES MELLITUS

REACTIONS (4)
  - CONDITION AGGRAVATED [None]
  - DIABETES MELLITUS [None]
  - PYOTHORAX [None]
  - PYREXIA [None]
